FAERS Safety Report 24991099 (Version 1)
Quarter: 2025Q1

REPORT INFORMATION
  Report Type: Report from Study
  Country: US (occurrence: US)
  Receive Date: 20250220
  Receipt Date: 20250220
  Transmission Date: 20250409
  Serious: Yes (Other)
  Sender: EXELIXIS
  Company Number: US-EXELIXIS-CABO-24076497

PATIENT
  Sex: Male

DRUGS (1)
  1. CABOMETYX [Suspect]
     Active Substance: CABOZANTINIB S-MALATE
     Indication: Renal cancer
     Dosage: 20 MG, QD
     Route: 048

REACTIONS (17)
  - Neuropathy peripheral [Unknown]
  - Vision blurred [Unknown]
  - Insomnia [Unknown]
  - Pain [Unknown]
  - Diarrhoea [Unknown]
  - Rash [Unknown]
  - Nausea [Unknown]
  - Fatigue [Unknown]
  - Palmar-plantar erythrodysaesthesia syndrome [Unknown]
  - Muscle spasms [Unknown]
  - Stomatitis [Unknown]
  - Abdominal pain [Unknown]
  - Skin ulcer [Unknown]
  - Abdominal pain upper [Unknown]
  - Neuralgia [Unknown]
  - Skin irritation [Unknown]
  - Dyspnoea [Unknown]
